FAERS Safety Report 9242199 (Version 5)
Quarter: 2013Q3

REPORT INFORMATION
  Report Type: Report from Study
  Country: FR (occurrence: FR)
  Receive Date: 20130419
  Receipt Date: 20130718
  Transmission Date: 20140515
  Serious: Yes (Hospitalization)
  Sender: FDA-Public Use
  Company Number: FR-ABBOTT-13P-056-1075321-00

PATIENT
  Age: 30 Year
  Sex: Female
  Weight: 46 kg

DRUGS (8)
  1. HUMIRA [Suspect]
     Indication: CROHN^S DISEASE
     Route: 058
     Dates: start: 20080201, end: 20080201
  2. HUMIRA [Suspect]
     Dosage: WEEK 2
     Route: 058
  3. HUMIRA [Suspect]
     Route: 058
  4. HUMIRA [Suspect]
     Route: 058
     Dates: start: 20090520
  5. LIBRAX [Concomitant]
     Indication: ABDOMINAL PAIN
     Route: 048
     Dates: start: 20081119
  6. LIBRAX [Concomitant]
     Indication: INFLAMMATORY BOWEL DISEASE
  7. ARESTAL [Concomitant]
     Indication: DIARRHOEA
     Dates: start: 20070809
  8. TOPALGIC [Concomitant]
     Indication: PAIN
     Dates: start: 20070621

REACTIONS (2)
  - General physical health deterioration [Recovered/Resolved]
  - Weight decreased [Recovered/Resolved]
